FAERS Safety Report 26101018 (Version 1)
Quarter: 2025Q4

REPORT INFORMATION
  Report Type: Spontaneous
  Country: GB (occurrence: GB)
  Receive Date: 20251128
  Receipt Date: 20251128
  Transmission Date: 20260118
  Serious: Yes (Disabling, Other)
  Sender: AUROBINDO
  Company Number: GB-MHRA-MED-202511162213259120-FRMZL

PATIENT
  Age: 80 Year
  Sex: Female
  Weight: 84 kg

DRUGS (3)
  1. TAMSULOSIN [Suspect]
     Active Substance: TAMSULOSIN
     Indication: Prostatomegaly
     Dosage: 400
     Route: 065
  2. LISINOPRIL [Concomitant]
     Active Substance: LISINOPRIL
     Indication: Product used for unknown indication
     Dosage: UNK
     Route: 065
  3. apixaban   lisinopril [Concomitant]
     Indication: Adverse drug reaction
     Route: 065

REACTIONS (5)
  - Swollen tongue [Unknown]
  - Headache [Recovering/Resolving]
  - Dizziness [Unknown]
  - Glossodynia [Unknown]
  - Vision blurred [Unknown]

NARRATIVE: CASE EVENT DATE: 20251110
